FAERS Safety Report 21178251 (Version 1)
Quarter: 2022Q3

REPORT INFORMATION
  Report Type: Spontaneous
  Country: TR (occurrence: TR)
  Receive Date: 20220805
  Receipt Date: 20220805
  Transmission Date: 20221026
  Serious: Yes (Hospitalization, Other)
  Sender: FDA-Public Use
  Company Number: TR-PFIZER INC-PV202200036325

PATIENT
  Age: 26 Year
  Sex: Male

DRUGS (1)
  1. PREGABALIN [Suspect]
     Active Substance: PREGABALIN
     Dosage: 20 CAPSULES OF 300 MG/DAY

REACTIONS (11)
  - Drug abuse [Unknown]
  - Intentional overdose [Unknown]
  - Withdrawal syndrome [Unknown]
  - Insomnia [Unknown]
  - Psychomotor hyperactivity [Unknown]
  - Tremor [Unknown]
  - Irritability [Unknown]
  - Nervousness [Unknown]
  - Dyspepsia [Unknown]
  - Anxiety [Unknown]
  - Depressive symptom [Unknown]
